FAERS Safety Report 4360304-8 (Version None)
Quarter: 2004Q2

REPORT INFORMATION
  Report Type: 
  Country: None (occurrence: None)
  Receive Date: 20040519
  Receipt Date: 20040507
  Transmission Date: 20050107
  Serious: Yes (Hospitalization)
  Sender: FDA-Public Use
  Company Number: US-JNJFOC-20030800774

PATIENT
  Sex: Male
  Weight: 78.02 kg

DRUGS (18)
  1. REMICADE [Suspect]
     Dosage: SECOND DOSE GIVEN TWO WEEKS AFTER FISRT DOSE
     Route: 042
  2. REMICADE [Suspect]
     Route: 042
  3. REMICADE [Suspect]
     Indication: CROHN'S DISEASE
     Route: 042
  4. AZULFADINE [Concomitant]
  5. VIOXX [Concomitant]
  6. MERCAPTOPURINE [Concomitant]
  7. AZULFADINE [Concomitant]
  8. VIOXX [Concomitant]
  9. FESO4 [Concomitant]
  10. ACIPHEX [Concomitant]
  11. MULTI-VITAMIN [Concomitant]
  12. MULTI-VITAMIN [Concomitant]
  13. MULTI-VITAMIN [Concomitant]
  14. MULTI-VITAMIN [Concomitant]
  15. MULTI-VITAMIN [Concomitant]
  16. MULTI-VITAMIN [Concomitant]
  17. MULTI-VITAMIN [Concomitant]
  18. MULTI-VITAMIN [Concomitant]

REACTIONS (8)
  - BLINDNESS UNILATERAL [None]
  - CENTRAL NERVOUS SYSTEM LESION [None]
  - CEREBRAL HAEMORRHAGE [None]
  - FALL [None]
  - HEAD INJURY [None]
  - LOSS OF CONSCIOUSNESS [None]
  - OPTIC NEURITIS [None]
  - WEIGHT DECREASED [None]
